FAERS Safety Report 6162693-0 (Version None)
Quarter: 2009Q2

REPORT INFORMATION
  Report Type: 
  Country: None (occurrence: None)
  Receive Date: 20090421
  Receipt Date: 20090410
  Transmission Date: 20091009
  Serious: Yes (Other)
  Sender: FDA-Public Use
  Company Number: US-BAXTER-2009BH005890

PATIENT
  Sex: Male

DRUGS (8)
  1. HEPARIN SODIUM INJECTION [Suspect]
     Indication: CORONARY ARTERY BYPASS
     Route: 065
     Dates: start: 20071211, end: 20071211
  2. HEPARIN SODIUM INJECTION [Suspect]
     Indication: VENOUS OPERATION
     Route: 065
     Dates: start: 20071211, end: 20071211
  3. HEPARIN SODIUM INJECTION [Suspect]
     Indication: ENDOSCOPY
     Route: 065
     Dates: start: 20071211, end: 20071211
  4. HEPARIN SODIUM INJECTION [Suspect]
     Indication: PROPHYLAXIS
     Route: 065
     Dates: start: 20071211, end: 20071211
  5. HEPARIN SODIUM INJECTION [Suspect]
     Route: 065
     Dates: start: 20071211, end: 20071221
  6. HEPARIN SODIUM INJECTION [Suspect]
     Route: 065
     Dates: start: 20071211, end: 20071221
  7. HEPARIN SODIUM INJECTION [Suspect]
     Route: 065
     Dates: start: 20071211, end: 20071221
  8. HEPARIN SODIUM INJECTION [Suspect]
     Route: 065
     Dates: start: 20071211, end: 20071221

REACTIONS (7)
  - ADRENAL DISORDER [None]
  - ADRENAL HAEMORRHAGE [None]
  - HEPARIN-INDUCED THROMBOCYTOPENIA [None]
  - HYPOTENSION [None]
  - HYPOXIA [None]
  - RENAL FAILURE ACUTE [None]
  - RESPIRATORY FAILURE [None]
